FAERS Safety Report 8242817-1 (Version None)
Quarter: 2012Q1

REPORT INFORMATION
  Report Type: 
  Country: None (occurrence: None)
  Receive Date: 20120329
  Receipt Date: 20120321
  Transmission Date: 20120608
  Serious: Yes (Other)
  Sender: FDA-Public Use
  Company Number: PHHY2012NL025522

PATIENT
  Sex: Male
  Weight: 80 kg

DRUGS (5)
  1. LEVEMIR [Concomitant]
     Dosage: 1 DF, 10-14 E
     Dates: start: 20120210
  2. CLOPIDOGREL [Concomitant]
     Dosage: 1 DF, QD
     Dates: start: 20120110
  3. ASCAL CARDIO [Concomitant]
     Dosage: 1 DF, QD
     Dates: start: 20000101
  4. METFORMIN HCL [Suspect]
     Indication: TYPE 2 DIABETES MELLITUS
     Dosage: 1 DF, BID
     Route: 048
     Dates: start: 20120210, end: 20120301
  5. VALSARTAN [Concomitant]
     Dosage: 1 DF, QD
     Dates: start: 20111205

REACTIONS (11)
  - ALANINE AMINOTRANSFERASE INCREASED [None]
  - WEIGHT DECREASED [None]
  - LIVER FUNCTION TEST ABNORMAL [None]
  - FATIGUE [None]
  - ASPARTATE AMINOTRANSFERASE INCREASED [None]
  - DYSPNOEA [None]
  - YELLOW SKIN [None]
  - DECREASED APPETITE [None]
  - MALAISE [None]
  - OCULAR ICTERUS [None]
  - NAUSEA [None]
